FAERS Safety Report 24857428 (Version 1)
Quarter: 2025Q1

REPORT INFORMATION
  Report Type: Spontaneous
  Country: US (occurrence: US)
  Receive Date: 20250117
  Receipt Date: 20250117
  Transmission Date: 20250408
  Serious: No
  Sender: PFIZER
  Company Number: US-PFIZER INC-202500009795

PATIENT
  Sex: Female

DRUGS (1)
  1. PAXLOVID [Suspect]
     Active Substance: NIRMATRELVIR\RITONAVIR
     Indication: COVID-19 treatment

REACTIONS (6)
  - Feeling abnormal [Unknown]
  - Muscular weakness [Unknown]
  - Dysstasia [Unknown]
  - Gait inability [Unknown]
  - Lethargy [Unknown]
  - Somnolence [Unknown]
